FAERS Safety Report 8173190-5 (Version None)
Quarter: 2012Q1

REPORT INFORMATION
  Report Type: 
  Country: None (occurrence: None)
  Receive Date: 20120104
  Receipt Date: 20111107
  Transmission Date: 20120608
  Serious: No
  Sender: FDA-Public Use
  Company Number: 2011HGS-002755

PATIENT
  Age: 68 Year
  Sex: Female
  Weight: 72.5755 kg

DRUGS (11)
  1. PREDNISONE [Concomitant]
  2. AMLODIPINE [Concomitant]
  3. VITAMIN B12 (CYANOCOBALAMIN) (CYANOCOBALAMIN) [Concomitant]
  4. BENLYSTA [Suspect]
     Indication: SYSTEMIC LUPUS ERYTHEMATOSUS
     Dosage: 1 IN 28 D, INTRAVENOUS DRIP
     Route: 041
     Dates: start: 20110901
  5. OSCAL (CALCIUM CARBONATE) (CALCIUM CARBONATE) [Concomitant]
  6. METOPROLOL SUCCINATE [Concomitant]
  7. HYDROCHLOROTHIAZIDE [Concomitant]
  8. FUROSEMIDE [Concomitant]
  9. SERTRALINE HYDROCHLORIDE [Concomitant]
  10. COUMADIN [Concomitant]
  11. B3 (NICOTINIC ACID) (NICOTINIC ACID) [Concomitant]

REACTIONS (3)
  - EYE PRURITUS [None]
  - EYE IRRITATION [None]
  - OCULAR HYPERAEMIA [None]
